FAERS Safety Report 13395483 (Version 5)
Quarter: 2018Q1

REPORT INFORMATION
  Report Type: Report from Study
  Country: CA (occurrence: CA)
  Receive Date: 20170403
  Receipt Date: 20180130
  Transmission Date: 20180508
  Serious: Yes (Hospitalization, Other)
  Sender: FDA-Public Use
  Company Number: CA-BRISTOL-MYERS SQUIBB COMPANY-BMS-2017-028083

PATIENT
  Age: 66 Year
  Sex: Female

DRUGS (3)
  1. ABATACEPT [Suspect]
     Active Substance: ABATACEPT
     Indication: PRODUCT USED FOR UNKNOWN INDICATION
     Dosage: 1000 MG, Q4WK
     Route: 042
     Dates: start: 2011
  2. ABATACEPT [Suspect]
     Active Substance: ABATACEPT
     Indication: PRODUCT USED FOR UNKNOWN INDICATION
     Dosage: 1000 MG, Q3WK
     Route: 042
     Dates: start: 20110706, end: 20180116
  3. ABATACEPT [Suspect]
     Active Substance: ABATACEPT
     Indication: RHEUMATOID ARTHRITIS
     Dosage: 750 MG, UNK
     Route: 042

REACTIONS (17)
  - Eye haemorrhage [Not Recovered/Not Resolved]
  - Retro-orbital neoplasm [Not Recovered/Not Resolved]
  - Bradycardia [Unknown]
  - Adverse event [Unknown]
  - Arthralgia [Unknown]
  - Fall [Unknown]
  - Actinic keratosis [Unknown]
  - Syncope [Unknown]
  - Wound infection [Unknown]
  - Foot fracture [Recovering/Resolving]
  - Vomiting [Not Recovered/Not Resolved]
  - Uveitis [Recovering/Resolving]
  - Cystitis [Unknown]
  - Pancreatitis [Unknown]
  - Loss of consciousness [Unknown]
  - Nausea [Not Recovered/Not Resolved]
  - Poor venous access [Unknown]

NARRATIVE: CASE EVENT DATE: 20170201
